FAERS Safety Report 6020541-3 (Version None)
Quarter: 2008Q4

REPORT INFORMATION
  Report Type: 
  Country: None (occurrence: None)
  Receive Date: 20081226
  Receipt Date: 20081217
  Transmission Date: 20090506
  Serious: Yes (Hospitalization, Other)
  Sender: FDA-Public Use
  Company Number: CN-ABBOTT-08P-035-0480945-00

PATIENT
  Age: 76 Year
  Sex: Female
  Weight: 59.5 kg

DRUGS (7)
  1. LIPANTHYL [Suspect]
     Indication: DRUG USE FOR UNKNOWN INDICATION
     Route: 048
     Dates: start: 20070101
  2. ASPIRIN [Concomitant]
     Indication: DRUG USE FOR UNKNOWN INDICATION
     Dosage: NOT REPORTED
  3. IRBESARTAN [Concomitant]
     Indication: DRUG USE FOR UNKNOWN INDICATION
     Dosage: NOT REPORTED
  4. PIPERAZINE FERULAT [Concomitant]
     Indication: DRUG USE FOR UNKNOWN INDICATION
     Dosage: NOT REPORTED
  5. NOVOLIN N [Concomitant]
     Indication: TYPE 2 DIABETES MELLITUS
     Dosage: NOT REPORTED
  6. METOPROLOL [Concomitant]
     Indication: HYPERTENSION
     Dosage: NOT REPORTED
  7. KETOSTERIL [Concomitant]
     Indication: DRUG USE FOR UNKNOWN INDICATION
     Dosage: NOT REPORTED

REACTIONS (2)
  - LIVER INJURY [None]
  - RHABDOMYOLYSIS [None]
